FAERS Safety Report 6876835-2 (Version None)
Quarter: 2010Q3

REPORT INFORMATION
  Report Type: 
  Country: None (occurrence: None)
  Receive Date: 20100727
  Receipt Date: 20100712
  Transmission Date: 20110219
  Serious: Yes (Other)
  Sender: FDA-Public Use
  Company Number: ES-GENENTECH-304354

PATIENT
  Age: 26 Year
  Sex: Female

DRUGS (1)
  1. RITUXIMAB [Suspect]
     Indication: MIXED CONNECTIVE TISSUE DISEASE
     Dosage: 1 G, UNK
     Route: 042
     Dates: start: 20060801

REACTIONS (3)
  - EXTREMITY NECROSIS [None]
  - ISCHAEMIA [None]
  - SERUM SICKNESS [None]
